FAERS Safety Report 22178905 (Version 1)
Quarter: 2023Q2

REPORT INFORMATION
  Report Type: Spontaneous
  Country: NL (occurrence: NL)
  Receive Date: 20230406
  Receipt Date: 20230406
  Transmission Date: 20230722
  Serious: Yes (Other)
  Sender: FDA-Public Use
  Company Number: NL-EMA-DD-20230323-7207890-125735

PATIENT
  Age: 12 Year
  Sex: Female

DRUGS (6)
  1. FLUCLOXACILLIN [Interacting]
     Active Substance: FLUCLOXACILLIN
     Indication: Staphylococcal sepsis
     Dosage: 12000 MG, DAILY (226MG/KG/DAY)
     Route: 065
  2. VORICONAZOLE [Interacting]
     Active Substance: VORICONAZOLE
     Indication: Bronchopulmonary aspergillosis
     Dosage: 18 MG/KG, DAILY
     Route: 048
  3. VORICONAZOLE [Interacting]
     Active Substance: VORICONAZOLE
     Indication: Cerebral aspergillosis
  4. VORICONAZOLE [Interacting]
     Active Substance: VORICONAZOLE
     Indication: Bronchopulmonary aspergillosis
     Dosage: 12 MG/KG, DAILY
     Route: 042
  5. VORICONAZOLE [Interacting]
     Active Substance: VORICONAZOLE
     Indication: Cerebral aspergillosis
     Dosage: 18 MG/KG, DAILY
     Route: 042
  6. VORICONAZOLE [Interacting]
     Active Substance: VORICONAZOLE
     Dosage: 24 MG/KG, DAILY
     Route: 042

REACTIONS (1)
  - Drug level below therapeutic [Recovered/Resolved]
